FAERS Safety Report 8458655-0 (Version None)
Quarter: 2012Q2

REPORT INFORMATION
  Report Type: 
  Country: None (occurrence: None)
  Receive Date: 20120622
  Receipt Date: 20120618
  Transmission Date: 20120825
  Serious: Yes (Death)
  Sender: FDA-Public Use
  Company Number: DZ-PFIZER INC-2012146855

PATIENT
  Age: 40 Year
  Sex: Male

DRUGS (5)
  1. DIURETICS [Concomitant]
  2. VFEND [Suspect]
     Indication: BRONCHOPULMONARY ASPERGILLOSIS
     Dosage: 200 MG, 2X/DAY
     Dates: start: 20120401
  3. VFEND [Suspect]
     Dosage: 200 MG, 2X/DAY
     Dates: start: 20120401
  4. HEPARIN SODIUM [Concomitant]
  5. COTRIM [Concomitant]

REACTIONS (2)
  - HAEMORRHAGE [None]
  - THROMBOPHLEBITIS [None]
